FAERS Safety Report 18569625 (Version 1)
Quarter: 2020Q4

REPORT INFORMATION
  Report Type: Spontaneous
  Country: US (occurrence: US)
  Receive Date: 20201201
  Receipt Date: 20201201
  Transmission Date: 20210114
  Serious: Yes (Hospitalization)
  Sender: FDA-Public Use
  Company Number: None

PATIENT
  Age: 49 Year
  Sex: Male
  Weight: 86.2 kg

DRUGS (2)
  1. XELODA [Suspect]
     Active Substance: CAPECITABINE
     Dates: end: 20201103
  2. TEMOZOLOMIDE. [Suspect]
     Active Substance: TEMOZOLOMIDE
     Dates: end: 20201102

REACTIONS (8)
  - Dysphagia [None]
  - Disease progression [None]
  - Oesophageal stenosis [None]
  - Pulmonary embolism [None]
  - Oesophageal mass [None]
  - Transfusion [None]
  - Oesophagitis [None]
  - Anaemia [None]

NARRATIVE: CASE EVENT DATE: 20201106
